FAERS Safety Report 20518820 (Version 1)
Quarter: 2022Q1

REPORT INFORMATION
  Report Type: Spontaneous
  Country: US (occurrence: US)
  Receive Date: 20220225
  Receipt Date: 20220225
  Transmission Date: 20220423
  Serious: No
  Sender: FDA-Public Use
  Company Number: US-INCYTE CORPORATION-2022IN001662

PATIENT

DRUGS (1)
  1. JAKAFI [Suspect]
     Active Substance: RUXOLITINIB
     Indication: Myelofibrosis
     Dosage: 10 MILLIGRAM TAKE 1 TABLET EVERY OTHER DAY, ALTERNATING WITH 2 TABLETS EVERY OTHER DAY
     Route: 048
     Dates: start: 20211014

REACTIONS (1)
  - Fatigue [Unknown]
